FAERS Safety Report 10404290 (Version 1)
Quarter: 2014Q1

REPORT INFORMATION
  Report Type: Spontaneous
  Country: US (occurrence: None)
  Receive Date: 20131226
  Receipt Date: 20131226
  Transmission Date: 20141002
  Serious: Yes (Other)
  Sender: FDA-Public Use
  Company Number: PHHY2011US28414

PATIENT
  Age: 48 Year
  Sex: Female

DRUGS (1)
  1. EXTAVIA (INTERFERON BETA-1B) [Suspect]
     Route: 058
     Dates: start: 20110318

REACTIONS (9)
  - Injection site infection [None]
  - Constipation [None]
  - Fatigue [None]
  - Pruritus [None]
  - Insomnia [None]
  - Injection site rash [None]
  - Injection site erythema [None]
  - Injection site pain [None]
  - Injection site discomfort [None]
